FAERS Safety Report 9252583 (Version 1)
Quarter: 2013Q2

REPORT INFORMATION
  Report Type: Spontaneous
  Country: US (occurrence: US)
  Receive Date: 20130424
  Receipt Date: 20130424
  Transmission Date: 20140414
  Serious: Yes (Hospitalization, Disabling)
  Sender: FDA-Public Use
  Company Number: US-GLAXOSMITHKLINE-A0789294A

PATIENT
  Age: 60 Year
  Sex: Male

DRUGS (2)
  1. AVANDIA [Suspect]
     Indication: TYPE 2 DIABETES MELLITUS
     Dosage: 4U PER DAY
     Route: 048
     Dates: start: 20061009, end: 20061125
  2. AVANDARYL [Suspect]
     Indication: TYPE 2 DIABETES MELLITUS
     Dosage: 4U PER DAY
     Route: 048
     Dates: start: 2006, end: 20070212

REACTIONS (4)
  - Cardiac failure congestive [Unknown]
  - Myocardial infarction [Unknown]
  - Cognitive disorder [Unknown]
  - Asthenia [Unknown]
